FAERS Safety Report 9366898 (Version 1)
Quarter: 2013Q2

REPORT INFORMATION
  Report Type: Spontaneous
  Country: BR (occurrence: None)
  Receive Date: 20130621
  Receipt Date: 20130621
  Transmission Date: 20140414
  Serious: Yes (Other)
  Sender: FDA-Public Use
  Company Number: BR-1198543

PATIENT
  Age: 70 Year
  Sex: Female

DRUGS (2)
  1. TRAVATAN [Suspect]
     Indication: GLAUCOMA
     Route: 047
     Dates: start: 2003
  2. TIMOPTOL [Concomitant]

REACTIONS (2)
  - Visual acuity reduced [None]
  - Cataract [None]
